FAERS Safety Report 24063188 (Version 3)
Quarter: 2024Q3

REPORT INFORMATION
  Report Type: Report from Study
  Country: TW (occurrence: TW)
  Receive Date: 20240709
  Receipt Date: 20240716
  Transmission Date: 20241016
  Serious: Yes (Other)
  Sender: JOHNSON AND JOHNSON
  Company Number: TW-JNJFOC-20240705106

PATIENT
  Age: 56 Year
  Sex: Female

DRUGS (1)
  1. RYBREVANT [Suspect]
     Active Substance: AMIVANTAMAB-VMJW
     Indication: Product used for unknown indication
     Route: 065
     Dates: start: 20240413, end: 20240611

REACTIONS (4)
  - Folliculitis [Unknown]
  - Disease progression [Unknown]
  - Drug ineffective [Unknown]
  - Adverse drug reaction [Unknown]
